FAERS Safety Report 13737905 (Version 1)
Quarter: 2017Q3

REPORT INFORMATION
  Report Type: Spontaneous
  Country: US (occurrence: US)
  Receive Date: 20170710
  Receipt Date: 20170710
  Transmission Date: 20171127
  Serious: Yes (Other)
  Sender: FDA-Public Use
  Company Number: US-SAOL THERAPEUTICS-2016SAO00838

PATIENT
  Sex: Male

DRUGS (4)
  1. LIORESAL [Suspect]
     Active Substance: BACLOFEN
     Indication: MUSCLE SPASTICITY
     Dosage: 1028.4 ?G, \DAY
     Route: 037
  2. XANAX [Concomitant]
     Active Substance: ALPRAZOLAM
  3. NEURONTIN [Concomitant]
     Active Substance: GABAPENTIN
  4. LIORESAL [Suspect]
     Active Substance: BACLOFEN
     Indication: CEREBRAL PALSY

REACTIONS (9)
  - Muscle spasticity [Unknown]
  - Agitation [Recovering/Resolving]
  - Dystonia [Recovering/Resolving]
  - Constipation [Unknown]
  - Sedation [Unknown]
  - Screaming [Unknown]
  - Drug withdrawal syndrome [Unknown]
  - Pain [Unknown]
  - Crying [Unknown]

NARRATIVE: CASE EVENT DATE: 201510
